FAERS Safety Report 23091640 (Version 2)
Quarter: 2023Q4

REPORT INFORMATION
  Report Type: Spontaneous
  Country: RU (occurrence: None)
  Receive Date: 20231020
  Receipt Date: 20231025
  Transmission Date: 20240109
  Serious: Yes (Life-Threatening, Hospitalization, Disabling, Other)
  Sender: FDA-Public Use
  Company Number: 2023A237410

PATIENT
  Age: 52 Year
  Sex: Female
  Weight: 76 kg

DRUGS (1)
  1. EVUSHELD [Suspect]
     Active Substance: CILGAVIMAB\TIXAGEVIMAB
     Route: 030
     Dates: start: 20230830

REACTIONS (12)
  - Facet joint syndrome [Unknown]
  - Myalgia [Unknown]
  - Musculoskeletal stiffness [Unknown]
  - Asthenia [Unknown]
  - Decreased activity [Unknown]
  - Headache [Unknown]
  - Fatigue [Unknown]
  - Fibromyalgia [Unknown]
  - Hypokinesia [Unknown]
  - General physical health deterioration [Unknown]
  - Ligamentitis [Unknown]
  - Myositis [Unknown]
